FAERS Safety Report 8183271-8 (Version None)
Quarter: 2012Q1

REPORT INFORMATION
  Report Type: 
  Country: None (occurrence: None)
  Receive Date: 20120305
  Receipt Date: 20120228
  Transmission Date: 20120608
  Serious: Yes (Other)
  Sender: FDA-Public Use
  Company Number: DE-SANOFI-AVENTIS-2012SA013071

PATIENT
  Sex: Female

DRUGS (2)
  1. DABIGATRAN ETEXILATE [Interacting]
     Route: 048
  2. MULTAQ [Suspect]
     Route: 048

REACTIONS (2)
  - VAGINAL HAEMORRHAGE [None]
  - DRUG INTERACTION [None]
